FAERS Safety Report 9139386 (Version 1)
Quarter: 2013Q1

REPORT INFORMATION
  Report Type: Spontaneous
  Country: US (occurrence: US)
  Receive Date: 20130305
  Receipt Date: 20130305
  Transmission Date: 20140127
  Serious: Yes (Other)
  Sender: FDA-Public Use
  Company Number: PHEH2013US005204

PATIENT
  Sex: Female

DRUGS (6)
  1. EXELON PATCH [Suspect]
     Indication: DEMENTIA ALZHEIMER^S TYPE
     Dosage: 4.6 MG, ONE PATCH DAILY
     Route: 062
  2. DETROL [Suspect]
  3. ATIVAN [Concomitant]
  4. LAMOTRIGINE [Concomitant]
     Dosage: 2 DF, UNK
  5. BACLOFEN [Concomitant]
     Dosage: 1 DF, TID
  6. NAMENDA [Concomitant]
     Dosage: 5 MG, UNK

REACTIONS (3)
  - Rib fracture [Unknown]
  - Wrist fracture [Unknown]
  - Fall [Unknown]
